FAERS Safety Report 10150205 (Version 2)
Quarter: 2014Q2

REPORT INFORMATION
  Report Type: Report from Study
  Country: NL (occurrence: NL)
  Receive Date: 20140502
  Receipt Date: 20140502
  Transmission Date: 20141212
  Serious: Yes (Death)
  Sender: FDA-Public Use
  Company Number: NL-ABBVIE-12P-114-0894136-00

PATIENT
  Age: 75 Year
  Sex: Male
  Weight: 96.5 kg

DRUGS (5)
  1. LUCRIN DEPOT 11.25 MG [Suspect]
     Indication: PROSTATE CANCER
     Route: 058
     Dates: start: 20100519, end: 20131021
  2. BICALUTAMIDE [Concomitant]
     Indication: PROSTATE CANCER
     Route: 048
     Dates: start: 2004
  3. ENALAPRIL W/HYDROCHLOROTHIAZIDE [Concomitant]
     Indication: HYPERTENSION
     Dosage: 20/12.5MG
     Route: 048
     Dates: start: 1990
  4. RHINOCORT [Concomitant]
     Indication: SINUS OPERATION
     Route: 055
     Dates: start: 2007
  5. RHINOCORT [Concomitant]
     Indication: JAW OPERATION

REACTIONS (2)
  - Death [Fatal]
  - Mood swings [Not Recovered/Not Resolved]
